FAERS Safety Report 17022032 (Version 1)
Quarter: 2019Q4

REPORT INFORMATION
  Report Type: Spontaneous
  Country: GB (occurrence: GB)
  Receive Date: 20191112
  Receipt Date: 20191112
  Transmission Date: 20200122
  Serious: Yes (Other)
  Sender: FDA-Public Use
  Company Number: GB-BAUSCH-BL-2019-059720

PATIENT
  Age: 32 Year
  Sex: Female

DRUGS (2)
  1. PROXYMETACAINE HYDROCHLORIDE [Suspect]
     Active Substance: PROPARACAINE HYDROCHLORIDE
     Indication: LOCAL ANAESTHESIA
     Route: 065
     Dates: start: 20171207, end: 20171207
  2. TETRACAINE. [Suspect]
     Active Substance: TETRACAINE
     Indication: LOCAL ANAESTHESIA
     Route: 065
     Dates: start: 20171207, end: 20171207

REACTIONS (2)
  - Loss of consciousness [Recovered/Resolved]
  - Syncope [Unknown]

NARRATIVE: CASE EVENT DATE: 20171207
